FAERS Safety Report 10259937 (Version 1)
Quarter: 2014Q2

REPORT INFORMATION
  Report Type: Report from Study
  Country: US (occurrence: US)
  Receive Date: 20140625
  Receipt Date: 20140625
  Transmission Date: 20141212
  Serious: Yes (Other)
  Sender: FDA-Public Use
  Company Number: US-ABBVIE-14P-163-1252177-00

PATIENT
  Age: 29 Year
  Sex: Female

DRUGS (2)
  1. LUPRON DEPOT [Suspect]
     Indication: ENDOMETRIOSIS
     Dates: start: 2009
  2. NORETHINDRONE ACETATE [Concomitant]
     Indication: ENDOMETRIOSIS
     Route: 048

REACTIONS (1)
  - Abortion spontaneous [Unknown]
